FAERS Safety Report 12465641 (Version 1)
Quarter: 2016Q2

REPORT INFORMATION
  Report Type: Spontaneous
  Country: FR (occurrence: FR)
  Receive Date: 20160614
  Receipt Date: 20160614
  Transmission Date: 20160815
  Serious: Yes (Hospitalization)
  Sender: FDA-Public Use
  Company Number: FR-WATSON-2016-12220

PATIENT
  Age: 51 Year
  Sex: Female

DRUGS (1)
  1. AMLODIPINE [Suspect]
     Active Substance: AMLODIPINE BESYLATE
     Indication: PRODUCT USED FOR UNKNOWN INDICATION
     Dosage: 3.6 G, SINGLE
     Route: 048

REACTIONS (3)
  - Shock [Recovering/Resolving]
  - Hypotension [Recovering/Resolving]
  - Overdose [Recovering/Resolving]
